FAERS Safety Report 5607856-5 (Version None)
Quarter: 2008Q1

REPORT INFORMATION
  Report Type: 
  Country: None (occurrence: None)
  Receive Date: 20080130
  Receipt Date: 20071217
  Transmission Date: 20080703
  Serious: No
  Sender: FDA-Public Use
  Company Number: US-BAYER-200716651NA

PATIENT
  Age: 87 Year
  Sex: Male
  Weight: 61 kg

DRUGS (1)
  1. NEXAVAR [Suspect]
     Indication: PROSTATE CANCER

REACTIONS (2)
  - OEDEMA PERIPHERAL [None]
  - SENSATION OF HEAVINESS [None]
